FAERS Safety Report 5807907-9 (Version None)
Quarter: 2008Q3

REPORT INFORMATION
  Report Type: 
  Country: None (occurrence: None)
  Receive Date: 20080711
  Receipt Date: 20080630
  Transmission Date: 20090109
  Serious: Yes (Hospitalization, Other)
  Sender: FDA-Public Use
  Company Number: US-PFIZER INC-2008034257

PATIENT
  Sex: Female
  Weight: 68 kg

DRUGS (9)
  1. CHANTIX [Suspect]
     Indication: SMOKING CESSATION THERAPY
  2. LUNESTA [Concomitant]
  3. HYDROCHLOROTHIAZIDE [Concomitant]
  4. ZOLOFT [Concomitant]
  5. COLACE [Concomitant]
  6. KLOR-CON [Concomitant]
  7. FAMOTIDINE [Concomitant]
  8. IBUPROFEN [Concomitant]
  9. HYDROXYZINE [Concomitant]

REACTIONS (5)
  - ADVERSE DRUG REACTION [None]
  - OBSESSIVE-COMPULSIVE DISORDER [None]
  - SUICIDAL IDEATION [None]
  - SUICIDE ATTEMPT [None]
  - THINKING ABNORMAL [None]
